FAERS Safety Report 10402354 (Version 4)
Quarter: 2014Q4

REPORT INFORMATION
  Report Type: Spontaneous
  Country: IT (occurrence: IT)
  Receive Date: 20140822
  Receipt Date: 20141229
  Transmission Date: 20150528
  Serious: Yes (Life-Threatening, Other)
  Sender: FDA-Public Use
  Company Number: IT-009507513-1408ITA010318

PATIENT
  Age: 59 Year
  Sex: Male
  Weight: 71 kg

DRUGS (10)
  1. LORATADINE. [Suspect]
     Active Substance: LORATADINE
     Dosage: 1 POSOLOGICAL UNIT, DAILY
     Route: 048
     Dates: start: 20140708, end: 20140811
  2. METOLAZONE. [Suspect]
     Active Substance: METOLAZONE
     Indication: CARDIAC FAILURE
     Dosage: 5 MG, QD
     Route: 048
     Dates: start: 20140708, end: 20140811
  3. ALLOPURINOL. [Suspect]
     Active Substance: ALLOPURINOL
     Indication: HYPERURICAEMIA
     Dosage: 150 UNITS UNKNOWN, QD
     Route: 048
     Dates: start: 20140708, end: 20140811
  4. IVABRADINE [Suspect]
     Active Substance: IVABRADINE
     Indication: CARDIAC FAILURE
     Dosage: 15 MG, QD
     Route: 048
     Dates: start: 20140708, end: 20140811
  5. WARFARIN SODIUM. [Concomitant]
     Active Substance: WARFARIN SODIUM
     Dosage: 5 MG, UNK
     Route: 048
     Dates: start: 20140410, end: 20140811
  6. LUVION (CANRENONE) [Concomitant]
     Active Substance: CANRENONE
     Dosage: 50 MG, UNK
     Route: 048
     Dates: start: 20140410, end: 20140811
  7. BISOPROLOL FUMARATE. [Suspect]
     Active Substance: BISOPROLOL FUMARATE
     Indication: ISCHAEMIC CARDIOMYOPATHY
     Dosage: 1.25 MG, QD
     Route: 048
     Dates: start: 20140708, end: 20140811
  8. RAMIPRIL. [Suspect]
     Active Substance: RAMIPRIL
     Indication: CARDIAC FAILURE
     Dosage: 2.5 MG, QD
     Route: 048
     Dates: start: 20140708, end: 20140811
  9. LASIX [Concomitant]
     Active Substance: FUROSEMIDE
     Dosage: 750 MG, UNK
     Route: 048
     Dates: start: 20140410, end: 20140811
  10. ASPIRIN. [Concomitant]
     Active Substance: ASPIRIN
     Dosage: 100 MG, UNK
     Route: 048
     Dates: start: 20140410, end: 20140811

REACTIONS (4)
  - Acute kidney injury [Recovering/Resolving]
  - Shock [Recovering/Resolving]
  - Erythema multiforme [Recovering/Resolving]
  - Multi-organ failure [Recovering/Resolving]

NARRATIVE: CASE EVENT DATE: 20140721
